FAERS Safety Report 21903451 (Version 2)
Quarter: 2023Q1

REPORT INFORMATION
  Report Type: Spontaneous
  Country: IE (occurrence: None)
  Receive Date: 20230124
  Receipt Date: 20230302
  Transmission Date: 20230418
  Serious: Yes (Hospitalization)
  Sender: FDA-Public Use
  Company Number: 2023A010990

PATIENT
  Age: 63 Year
  Sex: Male
  Weight: 73 kg

DRUGS (10)
  1. DAPAGLIFLOZIN [Suspect]
     Active Substance: DAPAGLIFLOZIN
     Indication: Type 2 diabetes mellitus
     Route: 048
     Dates: start: 20221219
  2. AMLODIPINE [Concomitant]
     Active Substance: AMLODIPINE BESYLATE
  3. METFORMIN [Concomitant]
     Active Substance: METFORMIN HYDROCHLORIDE
  4. SITAGLIPTIN [Concomitant]
     Active Substance: SITAGLIPTIN
  5. VENLAFAXINE [Concomitant]
     Active Substance: VENLAFAXINE HYDROCHLORIDE
  6. MIRTAZAPINE [Concomitant]
     Active Substance: MIRTAZAPINE
  7. BUPIVACAINE [Concomitant]
     Active Substance: BUPIVACAINE
     Dosage: HEAVY BUPIVACAINE 0.5 3 ML
     Dates: start: 20221222
  8. ATORVASTATIN [Concomitant]
     Active Substance: ATORVASTATIN
  9. FENTANYL [Concomitant]
     Active Substance: FENTANYL
     Dosage: 20 MICROGRAMS PER INHALATION
     Route: 055
     Dates: start: 20221222
  10. ASPIRIN [Concomitant]
     Active Substance: ASPIRIN

REACTIONS (2)
  - Tachycardia [Recovered/Resolved]
  - Diabetic ketoacidosis [Recovered/Resolved]

NARRATIVE: CASE EVENT DATE: 20221220
